FAERS Safety Report 8160221-1 (Version None)
Quarter: 2012Q1

REPORT INFORMATION
  Report Type: 
  Country: None (occurrence: None)
  Receive Date: 20120223
  Receipt Date: 20120220
  Transmission Date: 20120608
  Serious: No
  Sender: FDA-Public Use
  Company Number: US-PFIZER INC-2012044738

PATIENT
  Sex: Female

DRUGS (2)
  1. GABAPENTIN [Suspect]
     Dosage: 800 MG, 1X/DAY
  2. GABAPENTIN [Suspect]
     Dosage: 600 MG, 1X/DAY

REACTIONS (4)
  - PRURITUS [None]
  - BURNING SENSATION [None]
  - SKIN EXFOLIATION [None]
  - FEELING ABNORMAL [None]
